FAERS Safety Report 21525415 (Version 2)
Quarter: 2022Q4

REPORT INFORMATION
  Report Type: Spontaneous
  Country: RO (occurrence: RO)
  Receive Date: 20221030
  Receipt Date: 20221101
  Transmission Date: 20230112
  Serious: No
  Sender: FDA-Public Use
  Company Number: RO-BRISTOL-MYERS SQUIBB COMPANY-2022-129077

PATIENT
  Weight: 92 kg

DRUGS (2)
  1. NIVOLUMAB [Suspect]
     Active Substance: NIVOLUMAB
     Indication: Renal cell carcinoma
     Dosage: DOSE: UNAVAILABLE; FREQ:?4 X NIVOLUMAB CYCLES 3MG/KGC IV+IPILIMUMAB 1MB/KGC IV
     Route: 042
  2. IPILIMUMAB [Suspect]
     Active Substance: IPILIMUMAB
     Indication: Renal cell carcinoma
     Dosage: 4 X NIVOLUMAB CYCLES 3MG/KGC IV+IPILIMUMAB 1MB/KGC IV
     Route: 042

REACTIONS (1)
  - No adverse event [Unknown]
